FAERS Safety Report 23254226 (Version 1)
Quarter: 2023Q4

REPORT INFORMATION
  Report Type: Spontaneous
  Country: CA (occurrence: CA)
  Receive Date: 20231202
  Receipt Date: 20231202
  Transmission Date: 20240110
  Serious: Yes (Other)
  Sender: FDA-Public Use
  Company Number: None

PATIENT
  Age: 61 Year
  Sex: Female

DRUGS (16)
  1. METHOTREXATE [Suspect]
     Active Substance: METHOTREXATE
     Indication: Rheumatoid arthritis
     Dosage: 1 EVERY 1 WEEKS
     Route: 058
  2. DEXLANSOPRAZOLE [Concomitant]
     Active Substance: DEXLANSOPRAZOLE
     Dosage: CAPSULE, DELAYED RELEASE
  3. EDOXABAN [Concomitant]
     Active Substance: EDOXABAN
  4. ESOMEPRAZOLE [Concomitant]
     Active Substance: ESOMEPRAZOLE
  5. FOLIC ACID [Concomitant]
     Active Substance: FOLIC ACID
     Route: 048
  6. EMPAGLIFLOZIN [Concomitant]
     Active Substance: EMPAGLIFLOZIN
  7. LIPITOR [Concomitant]
     Active Substance: ATORVASTATIN CALCIUM
  8. METFORMIN [Concomitant]
     Active Substance: METFORMIN HYDROCHLORIDE
  9. METFORMIN\SITAGLIPTIN [Concomitant]
     Active Substance: METFORMIN\SITAGLIPTIN
  10. METRONIDAZOLE [Concomitant]
     Active Substance: METRONIDAZOLE
  11. ABATACEPT [Concomitant]
     Active Substance: ABATACEPT
     Dosage: 1 EVERY 1 WEEKS
     Route: 058
  12. PREDNISONE [Concomitant]
     Active Substance: PREDNISONE
     Dosage: 1 EVERY 1 DAYS
     Route: 048
  13. PREDNISONE [Concomitant]
     Active Substance: PREDNISONE
     Dosage: 1 EVERY 1 DAYS
     Route: 048
  14. RITUXIMAB [Concomitant]
     Active Substance: RITUXIMAB
     Indication: Rheumatoid arthritis
     Dosage: SOLUTION FOR INFUSION
     Route: 042
  15. SEMAGLUTIDE [Concomitant]
     Active Substance: SEMAGLUTIDE
     Indication: Diabetes mellitus
     Dosage: SOLUTION SUBCUTANEOUS
  16. SYNTHROID [Concomitant]
     Active Substance: LEVOTHYROXINE SODIUM

REACTIONS (4)
  - Condition aggravated [Not Recovered/Not Resolved]
  - Arthralgia [Not Recovered/Not Resolved]
  - Joint swelling [Not Recovered/Not Resolved]
  - Off label use [Not Recovered/Not Resolved]
